FAERS Safety Report 7017902-2 (Version None)
Quarter: 2010Q3

REPORT INFORMATION
  Report Type: 
  Country: None (occurrence: None)
  Receive Date: 20100928
  Receipt Date: 20100915
  Transmission Date: 20110219
  Serious: No
  Sender: FDA-Public Use
  Company Number: US-ELI_LILLY_AND_COMPANY-US201009004543

PATIENT
  Age: 64 Year
  Sex: Female

DRUGS (4)
  1. CYMBALTA [Suspect]
     Dosage: 30 MG, UNK
  2. CYMBALTA [Suspect]
     Dosage: 1 D/F, UNK
  3. PAXIL [Concomitant]
  4. OPIOIDS [Concomitant]

REACTIONS (2)
  - CONSTIPATION [None]
  - HEPATIC STEATOSIS [None]
